FAERS Safety Report 4828561-9 (Version None)
Quarter: 2005Q4

REPORT INFORMATION
  Report Type: 
  Country: None (occurrence: None)
  Receive Date: 20051115
  Receipt Date: 20050926
  Transmission Date: 20060501
  Serious: Yes (Other)
  Sender: FDA-Public Use
  Company Number: US-AMGEN-US151889

PATIENT
  Sex: Female
  Weight: 85.8 kg

DRUGS (14)
  1. ENBREL [Suspect]
     Indication: RHEUMATOID ARTHRITIS
     Route: 058
     Dates: start: 20041101, end: 20050401
  2. PREMARIN [Concomitant]
  3. OSCAL [Concomitant]
  4. LASIX [Concomitant]
  5. PREDNISONE [Concomitant]
  6. FIORINAL [Concomitant]
  7. IRON [Concomitant]
  8. HYDROXYZINE [Concomitant]
  9. VALTREX [Concomitant]
  10. NEXIUM [Concomitant]
  11. ADVAIR DISKUS 100/50 [Concomitant]
  12. POTASSIUM [Concomitant]
  13. SINGULAIR [Concomitant]
  14. CELEBREX [Concomitant]
     Dates: start: 20050719

REACTIONS (4)
  - ATYPICAL MYCOBACTERIAL INFECTION [None]
  - PAIN [None]
  - SWELLING [None]
  - WOUND SECRETION [None]
